FAERS Safety Report 7790154-1 (Version None)
Quarter: 2011Q3

REPORT INFORMATION
  Report Type: 
  Country: None (occurrence: None)
  Receive Date: 20110930
  Receipt Date: 20101012
  Transmission Date: 20111222
  Serious: No
  Sender: FDA-Public Use
  Company Number: US-ASTRAZENECA-2010SE48108

PATIENT
  Sex: Female
  Weight: 97.5 kg

DRUGS (9)
  1. ARIMIDEX [Suspect]
     Indication: BREAST CANCER
     Route: 048
     Dates: start: 20100912
  2. WELLBUTRIN [Concomitant]
     Indication: DEPRESSION
  3. PROZAC [Concomitant]
     Indication: DEPRESSION
  4. LORAZEPAM [Concomitant]
     Indication: ANXIETY
  5. METFORMIN HCL [Concomitant]
     Indication: DIABETES MELLITUS
  6. SIMVASTATIN [Concomitant]
     Indication: HYPERCHOLESTEROLAEMIA
  7. GLYPURIDE [Concomitant]
     Indication: DIABETES MELLITUS
  8. SAFRIX [Concomitant]
     Indication: ANXIETY DISORDER
  9. LUNESTA [Concomitant]
     Indication: INSOMNIA

REACTIONS (4)
  - DRUG DOSE OMISSION [None]
  - BLOOD GLUCOSE INCREASED [None]
  - EMOTIONAL DISTRESS [None]
  - DEPRESSED MOOD [None]
